FAERS Safety Report 20802767 (Version 1)
Quarter: 2022Q2

REPORT INFORMATION
  Report Type: Spontaneous
  Country: SE (occurrence: SE)
  Receive Date: 20220509
  Receipt Date: 20220509
  Transmission Date: 20220721
  Serious: Yes (Hospitalization)
  Sender: FDA-Public Use
  Company Number: None

PATIENT
  Age: 32 Year
  Sex: Female
  Weight: 56 kg

DRUGS (4)
  1. ZYPADHERA [Suspect]
     Active Substance: OLANZAPINE PAMOATE
     Indication: Psychotic disorder
     Dosage: 300 MG, OTHER (EVERY 14 DAYS)
     Route: 030
     Dates: start: 20220112, end: 20220126
  2. ZYPADHERA [Suspect]
     Active Substance: OLANZAPINE PAMOATE
     Indication: Psychotic disorder
     Dosage: 300 MG, OTHER (EVERY 14 DAYS)
     Route: 030
     Dates: start: 20220112, end: 20220126
  3. ZYPADHERA [Suspect]
     Active Substance: OLANZAPINE PAMOATE
     Indication: Psychotic disorder
     Dosage: 300 MG, OTHER (EVERY 14 DAYS)
     Route: 030
     Dates: start: 20220112, end: 20220126
  4. ABILIFY MAINTENA [Concomitant]
     Active Substance: ARIPIPRAZOLE
     Indication: Product used for unknown indication
     Dosage: 400 MG, MONTHLY (1/M)
     Route: 030
     Dates: start: 20211117, end: 20211215

REACTIONS (1)
  - Altered state of consciousness [Recovered/Resolved]

NARRATIVE: CASE EVENT DATE: 20220126
